FAERS Safety Report 25323004 (Version 3)
Quarter: 2025Q3

REPORT INFORMATION
  Report Type: Report from Study
  Country: US (occurrence: US)
  Receive Date: 20250516
  Receipt Date: 20250728
  Transmission Date: 20251021
  Serious: Yes (Other)
  Sender: TAKEDA
  Company Number: US-TAKEDA-2024TUS042059

PATIENT
  Sex: Female
  Weight: 82 kg

DRUGS (21)
  1. HUMAN IMMUNOGLOBULIN G\HYALURONIDASE RECOMBINANT HUMAN [Suspect]
     Active Substance: HUMAN IMMUNOGLOBULIN G\HYALURONIDASE (HUMAN RECOMBINANT)
     Indication: Immunodeficiency common variable
     Dosage: 60 GRAM, Q4WEEKS
  2. GAMUNEX [Suspect]
     Active Substance: HUMAN IMMUNOGLOBULIN G
     Indication: Immunodeficiency common variable
  3. SODIUM CHLORIDE [Concomitant]
     Active Substance: SODIUM CHLORIDE
  4. EPINEPHRINE [Concomitant]
     Active Substance: EPINEPHRINE
  5. ZYRTEC [Concomitant]
     Active Substance: CETIRIZINE HYDROCHLORIDE
  6. SODIUM CHLORIDE [Concomitant]
     Active Substance: SODIUM CHLORIDE
  7. ALREX [Concomitant]
     Active Substance: LOTEPREDNOL ETABONATE
  8. PEPCID [Concomitant]
     Active Substance: FAMOTIDINE
  9. ALLEGRA-D [Concomitant]
     Active Substance: FEXOFENADINE HYDROCHLORIDE\PSEUDOEPHEDRINE HYDROCHLORIDE
  10. LIPITOR [Concomitant]
     Active Substance: ATORVASTATIN CALCIUM
  11. LIDOCAINE [Concomitant]
     Active Substance: LIDOCAINE
  12. REFRESH TEARS [Concomitant]
     Active Substance: CARBOXYMETHYLCELLULOSE SODIUM
  13. OZEMPIC [Concomitant]
     Active Substance: SEMAGLUTIDE
  14. ASPIRIN [Concomitant]
     Active Substance: ASPIRIN
  15. SACCHAROMYCES CEREVISIAE [Concomitant]
     Active Substance: SACCHAROMYCES CEREVISIAE
  16. DIPHENHYDRAMINE HYDROCHLORIDE [Concomitant]
     Active Substance: DIPHENHYDRAMINE HYDROCHLORIDE
  17. OMEPRAZOLE [Concomitant]
     Active Substance: OMEPRAZOLE
  18. ALTACE [Concomitant]
     Active Substance: RAMIPRIL
  19. ZADITOR [Concomitant]
     Active Substance: KETOTIFEN FUMARATE
  20. METFORMIN [Concomitant]
     Active Substance: METFORMIN HYDROCHLORIDE
  21. CULTURELLE [Concomitant]
     Active Substance: LACTOBACILLUS RHAMNOSUS

REACTIONS (14)
  - Cataract [Unknown]
  - Dermatitis contact [Unknown]
  - Urinary tract infection [Unknown]
  - COVID-19 [Unknown]
  - Injection site erythema [Unknown]
  - Injection site discomfort [Unknown]
  - Infected bite [Unknown]
  - Arthropod bite [Unknown]
  - Corneal oedema [Recovering/Resolving]
  - Rubber sensitivity [Unknown]
  - Eye swelling [Unknown]
  - Injection site mass [Unknown]
  - Injection site swelling [Unknown]
  - Infusion site swelling [Recovered/Resolved]
